FAERS Safety Report 24286109 (Version 4)
Quarter: 2025Q2

REPORT INFORMATION
  Report Type: Report from Study
  Country: DE (occurrence: DE)
  Receive Date: 20240905
  Receipt Date: 20250611
  Transmission Date: 20250717
  Serious: Yes (Hospitalization)
  Sender: UCB
  Company Number: DE-UCBSA-2023057025

PATIENT
  Sex: Female

DRUGS (11)
  1. CERTOLIZUMAB PEGOL [Suspect]
     Active Substance: CERTOLIZUMAB PEGOL
     Indication: Axial spondyloarthritis
     Dates: start: 20180323, end: 2018
  2. CERTOLIZUMAB PEGOL [Suspect]
     Active Substance: CERTOLIZUMAB PEGOL
     Dates: start: 2018, end: 20180622
  3. CERTOLIZUMAB PEGOL [Suspect]
     Active Substance: CERTOLIZUMAB PEGOL
     Dates: start: 20190522, end: 20190822
  4. CERTOLIZUMAB PEGOL [Suspect]
     Active Substance: CERTOLIZUMAB PEGOL
     Dates: start: 20191021, end: 20200410
  5. CERTOLIZUMAB PEGOL [Suspect]
     Active Substance: CERTOLIZUMAB PEGOL
     Dates: start: 20200515, end: 20200715
  6. CERTOLIZUMAB PEGOL [Suspect]
     Active Substance: CERTOLIZUMAB PEGOL
     Dates: start: 20200901, end: 20201002
  7. CERTOLIZUMAB PEGOL [Suspect]
     Active Substance: CERTOLIZUMAB PEGOL
     Dates: start: 20201120, end: 20220412
  8. CERTOLIZUMAB PEGOL [Suspect]
     Active Substance: CERTOLIZUMAB PEGOL
     Dates: start: 20220704, end: 20240729
  9. CELECOXIB [Concomitant]
     Active Substance: CELECOXIB
     Indication: Axial spondyloarthritis
     Dosage: 400 MILLIGRAM, ONCE DAILY (QD)
     Dates: start: 20200318
  10. CELECOXIB [Concomitant]
     Active Substance: CELECOXIB
     Dates: start: 20200818
  11. ACEMETACIN [Concomitant]
     Active Substance: ACEMETACIN
     Indication: Product used for unknown indication
     Dates: start: 20170801, end: 20180815

REACTIONS (5)
  - Enterocolitis [Unknown]
  - Reactive gastropathy [Unknown]
  - Nasopharyngitis [Unknown]
  - Fractured coccyx [Unknown]
  - Gastrooesophageal reflux disease [Unknown]

NARRATIVE: CASE EVENT DATE: 20230115
